FAERS Safety Report 9283449 (Version 1)
Quarter: 2013Q2

REPORT INFORMATION
  Report Type: Spontaneous
  Country: US (occurrence: US)
  Receive Date: 20130510
  Receipt Date: 20130510
  Transmission Date: 20140414
  Serious: No
  Sender: FDA-Public Use
  Company Number: US-GLAXOSMITHKLINE-A1009061A

PATIENT
  Age: 29 Year
  Sex: Female

DRUGS (7)
  1. TYKERB [Suspect]
     Indication: BREAST CANCER
     Dosage: 1250MG PER DAY
     Route: 048
     Dates: start: 20121019
  2. KLOR-CON [Concomitant]
  3. CLONAZEPAM [Concomitant]
  4. PROCHLORPERAZINE [Concomitant]
  5. ZOFRAN [Concomitant]
  6. WELLBUTRIN [Concomitant]
  7. XELODA [Concomitant]

REACTIONS (2)
  - Flatulence [Unknown]
  - Eructation [Unknown]
